FAERS Safety Report 21785111 (Version 1)
Quarter: 2022Q4

REPORT INFORMATION
  Report Type: Spontaneous
  Country: CN (occurrence: CN)
  Receive Date: 20221227
  Receipt Date: 20221227
  Transmission Date: 20230112
  Serious: Yes (Other)
  Sender: FDA-Public Use
  Company Number: CN-PFIZER INC-PV202200128489

PATIENT
  Age: 55 Year
  Sex: Male
  Weight: 84 kg

DRUGS (2)
  1. IRINOTECAN [Suspect]
     Active Substance: IRINOTECAN
     Indication: Neoplasm
     Dosage: 250 MG, 1X/DAY
     Route: 041
     Dates: start: 20221001, end: 20221001
  2. SODIUM CHLORIDE [Concomitant]
     Active Substance: SODIUM CHLORIDE
     Indication: Vehicle solution use
     Dosage: 250 ML, 1X/DAY
     Route: 041
     Dates: start: 20221001, end: 20221001

REACTIONS (5)
  - Cholinergic syndrome [Recovering/Resolving]
  - Abdominal pain [Unknown]
  - Hyperhidrosis [Unknown]
  - Vomiting [Unknown]
  - Drooling [Unknown]

NARRATIVE: CASE EVENT DATE: 20221001
